FAERS Safety Report 6317599-0 (Version None)
Quarter: 2009Q3

REPORT INFORMATION
  Report Type: 
  Country: None (occurrence: None)
  Receive Date: 20090821
  Receipt Date: 20090818
  Transmission Date: 20100115
  Serious: No
  Sender: FDA-Public Use
  Company Number: US-B.I. PHARMACEUTICALS,INC./RIDGEFIELD-2009-BP-09750BP

PATIENT
  Age: 84 Year
  Sex: Male

DRUGS (3)
  1. FLOMAX [Suspect]
     Indication: URINE OUTPUT DECREASED
     Dosage: 0.4 MG
     Route: 048
     Dates: start: 20040101
  2. SEED IMPLANT [Concomitant]
     Indication: PROSTATE CANCER
     Dates: start: 20040101
  3. ASPIRIN [Concomitant]
     Indication: PROPHYLAXIS

REACTIONS (1)
  - CONSTIPATION [None]
